FAERS Safety Report 15225554 (Version 2)
Quarter: 2018Q4

REPORT INFORMATION
  Report Type: Spontaneous
  Country: PT (occurrence: PT)
  Receive Date: 20180801
  Receipt Date: 20180818
  Transmission Date: 20190204
  Serious: Yes (Life-Threatening, Hospitalization, Other)
  Sender: FDA-Public Use
  Company Number: PT-AUROBINDO-AUR-APL-2018-038232

PATIENT
  Age: 51 Year
  Sex: Female
  Weight: 72 kg

DRUGS (9)
  1. BUPROPION. [Interacting]
     Active Substance: BUPROPION
     Indication: WEIGHT DECREASED
     Dosage: 240 MILLIGRAM (120MG BID)
     Route: 048
     Dates: start: 2017
  2. TRI-GYNERA [Interacting]
     Active Substance: ETHINYL ESTRADIOL\GESTODENE
     Indication: CONTRACEPTION
     Dosage: UNK
     Route: 065
  3. FUROSEMIDE TABLETS [Interacting]
     Active Substance: FUROSEMIDE
     Indication: WEIGHT DECREASED
     Dosage: 60 MILLIGRAM, DAILY (30MG BID)
     Route: 048
     Dates: start: 2017
  4. CHLORDIAZEPOXIDE. [Interacting]
     Active Substance: CHLORDIAZEPOXIDE
     Indication: WEIGHT DECREASED
     Dosage: 20 MILLIGRAM, DAILY (10MG BID)
     Route: 048
     Dates: start: 2017
  5. TOPIRAMATE FILM-COATED TABLET [Interacting]
     Active Substance: TOPIRAMATE
     Indication: WEIGHT DECREASED
     Dosage: 70 MILLIGRAM, DAILY
     Route: 048
     Dates: start: 2017
  6. HOODIA GORDONII [Interacting]
     Active Substance: DIETARY SUPPLEMENT
     Indication: WEIGHT DECREASED
     Dosage: 140 MILLIGRAM, DAILY
     Route: 048
     Dates: start: 2017
  7. METFORMIN FILM-COATED TABLET [Suspect]
     Active Substance: METFORMIN HYDROCHLORIDE
     Indication: WEIGHT DECREASED
     Dosage: 460 MILLIGRAM, DAILY (230MG BID)
     Route: 048
     Dates: start: 2017
  8. CASCARA [Interacting]
     Active Substance: RHAMNUS PURSHIANA BARK EXTRACT
     Indication: WEIGHT DECREASED
     Dosage: 120 MILLIGRAM, DAILY (60MG 2ID)
     Route: 048
     Dates: start: 2017
  9. BUPROPION. [Interacting]
     Active Substance: BUPROPION
     Dosage: 120MG BID
     Route: 048
     Dates: start: 201706, end: 201807

REACTIONS (3)
  - Product use in unapproved indication [Unknown]
  - Headache [Recovering/Resolving]
  - Cerebral venous thrombosis [Recovering/Resolving]

NARRATIVE: CASE EVENT DATE: 20180619
